FAERS Safety Report 9910133 (Version 1)
Quarter: 2014Q1

REPORT INFORMATION
  Report Type: Spontaneous
  Country: US (occurrence: US)
  Receive Date: 20140219
  Receipt Date: 20140219
  Transmission Date: 20141002
  Serious: Yes (Other)
  Sender: FDA-Public Use
  Company Number: US-PURDUE-USA-2014-0111178

PATIENT
  Age: 19 Year
  Sex: Female

DRUGS (1)
  1. COLACE [Suspect]
     Indication: CONSTIPATION
     Dosage: 100 MG, UNK
     Dates: start: 20140209

REACTIONS (5)
  - Anaphylactic reaction [Recovered/Resolved]
  - Rash [Not Recovered/Not Resolved]
  - Throat tightness [Recovered/Resolved]
  - Dyspnoea [Recovered/Resolved]
  - Reaction to colouring [Unknown]
